FAERS Safety Report 11808444 (Version 1)
Quarter: 2015Q4

REPORT INFORMATION
  Report Type: Spontaneous
  Country: US (occurrence: US)
  Receive Date: 20151207
  Receipt Date: 20151207
  Transmission Date: 20160305
  Serious: No
  Sender: FDA-Public Use
  Company Number: US-ROCHE-1532928

PATIENT
  Age: 72 Year
  Sex: Female

DRUGS (1)
  1. LUCENTIS [Suspect]
     Active Substance: RANIBIZUMAB
     Indication: VENOUS OCCLUSION
     Dosage: LAST DOSE PRIOR TO SAE: 02/JAN/2015
     Route: 065

REACTIONS (2)
  - Sinusitis [Unknown]
  - Eye pain [Unknown]

NARRATIVE: CASE EVENT DATE: 201501
